FAERS Safety Report 13313372 (Version 4)
Quarter: 2021Q3

REPORT INFORMATION
  Report Type: Report from Study
  Country: CA (occurrence: CA)
  Receive Date: 20170309
  Receipt Date: 20210920
  Transmission Date: 20211014
  Serious: Yes (Other)
  Sender: FDA-Public Use
  Company Number: CA-PFIZER INC-2017098811

PATIENT
  Age: 43 Year
  Sex: Female

DRUGS (9)
  1. GABAPENTIN. [Concomitant]
     Active Substance: GABAPENTIN
     Indication: FIBROMYALGIA
     Dosage: 900 MILLIGRAM
  2. RESTORIL [Concomitant]
     Active Substance: TEMAZEPAM
     Indication: SLEEP DISORDER
     Dosage: 45 MILLIGRAM
  3. ENTYVIO [Suspect]
     Active Substance: VEDOLIZUMAB
     Dosage: 300 MILLIGRAM
     Route: 042
     Dates: start: 20170104
  4. ZOLOFT [Concomitant]
     Active Substance: SERTRALINE HYDROCHLORIDE
     Indication: DEPRESSION
     Dosage: 225 MILLIGRAM, QD
  5. TYGACIL [Concomitant]
     Active Substance: TIGECYCLINE
     Indication: CROHN^S DISEASE
     Dosage: UNK
  6. ENTYVIO [Suspect]
     Active Substance: VEDOLIZUMAB
     Indication: CROHN^S DISEASE
     Dosage: 300 MILLIGRAM
     Route: 042
     Dates: start: 20170104
  7. TECTA [Suspect]
     Active Substance: PANTOPRAZOLE MAGNESIUM
     Indication: HYPERCHLORHYDRIA
     Dosage: 40 MILLIGRAM
     Dates: start: 2013
  8. RISPERDAL [Concomitant]
     Active Substance: RISPERIDONE
     Indication: ANXIETY
     Dosage: 10 MILLIGRAM
  9. ENTYVIO [Suspect]
     Active Substance: VEDOLIZUMAB
     Dosage: 300 MILLIGRAM, Q4WEEKS
     Route: 042
     Dates: start: 20181205

REACTIONS (1)
  - Nephrolithiasis [Unknown]
